FAERS Safety Report 24686420 (Version 1)
Quarter: 2024Q4

REPORT INFORMATION
  Report Type: Report from Study
  Country: US (occurrence: US)
  Receive Date: 20241202
  Receipt Date: 20241202
  Transmission Date: 20250115
  Serious: Yes (Hospitalization)
  Sender: PARATEK PHARMACEUTICALS
  Company Number: US-PARATEK PHARMACEUTICALS, INC.-2023PTK00721

PATIENT
  Age: 59 Year
  Sex: Male

DRUGS (6)
  1. NUZYRA [Suspect]
     Active Substance: OMADACYCLINE
     Indication: Acid fast bacilli infection
     Dosage: 300 MG, 1X/DAY
     Route: 048
     Dates: start: 20231221
  2. NUZYRA [Suspect]
     Active Substance: OMADACYCLINE
     Dosage: 150 MG, 2X/DAY
     Route: 048
     Dates: start: 202312
  3. NUZYRA [Suspect]
     Active Substance: OMADACYCLINE
     Dosage: 150 MG, 2X/DAY
     Route: 048
     Dates: start: 202312
  4. NUZYRA [Suspect]
     Active Substance: OMADACYCLINE
     Dosage: 150 MG, 2X/DAY
     Route: 048
     Dates: start: 202312
  5. NUZYRA [Suspect]
     Active Substance: OMADACYCLINE
     Dosage: 150 MG, 2X/DAY
     Route: 048
     Dates: start: 202312
  6. NUZYRA [Suspect]
     Active Substance: OMADACYCLINE
     Dosage: 150 MG, 2X/DAY
     Route: 048
     Dates: start: 202312

REACTIONS (6)
  - Hospitalisation [Recovered/Resolved]
  - Diarrhoea [Unknown]
  - Dyspepsia [Unknown]
  - Unevaluable event [Unknown]
  - Off label use [Unknown]
  - Incorrect product administration duration [Unknown]

NARRATIVE: CASE EVENT DATE: 20231201
